FAERS Safety Report 10187729 (Version 1)
Quarter: 2014Q2

REPORT INFORMATION
  Report Type: Spontaneous
  Country: US (occurrence: US)
  Receive Date: 20140522
  Receipt Date: 20140522
  Transmission Date: 20141212
  Serious: No
  Sender: FDA-Public Use
  Company Number: US-SANOFI-AVENTIS-2013SA078341

PATIENT
  Age: 87 Year
  Sex: Female

DRUGS (2)
  1. SOLOSTAR [Suspect]
     Indication: TYPE 2 DIABETES MELLITUS
     Dosage: TAKEN FROM: MANY YEARS
  2. LANTUS SOLOSTAR [Suspect]
     Indication: TYPE 2 DIABETES MELLITUS
     Dosage: TAKEN FROM: MANY YEARS?DOSE: 37 U  AM + 19 U PM
     Route: 051

REACTIONS (4)
  - Arthritis [Unknown]
  - Musculoskeletal discomfort [Unknown]
  - Injection site bruising [Unknown]
  - Injection site pain [Unknown]
